FAERS Safety Report 5950659-2 (Version None)
Quarter: 2008Q4

REPORT INFORMATION
  Report Type: 
  Country: None (occurrence: None)
  Receive Date: 20081022
  Receipt Date: 20080617
  Transmission Date: 20090506
  Serious: No
  Sender: FDA-Public Use
  Company Number: ALL1-2008-01795

PATIENT
  Age: 36 Year
  Sex: Female
  Weight: 56.7 kg

DRUGS (3)
  1. VYVANSE [Suspect]
     Indication: ATTENTION DEFICIT/HYPERACTIVITY DISORDER
     Dosage: 70 MG,1X/DAY:QD,ORAL; 70 MG, 2X/DAY:BID,ORAL
     Route: 048
     Dates: start: 20080101
  2. CYMBALTA [Concomitant]
  3. WELLBUTRIN /00700501/ (BUPROPION) TABLET [Concomitant]

REACTIONS (2)
  - DRUG EFFECT DECREASED [None]
  - OVERDOSE [None]
